FAERS Safety Report 4541598-2 (Version None)
Quarter: 2004Q4

REPORT INFORMATION
  Report Type: 
  Country: None (occurrence: None)
  Receive Date: 20041230
  Receipt Date: 20041223
  Transmission Date: 20050328
  Serious: Yes (Hospitalization)
  Sender: FDA-Public Use
  Company Number: PHRM2004FR03764

PATIENT
  Age: 66 Year
  Sex: Male

DRUGS (5)
  1. EXELON [Suspect]
     Route: 048
     Dates: end: 20041012
  2. LARGACTIL [Suspect]
     Route: 048
     Dates: end: 20041007
  3. PARKINANE [Suspect]
     Route: 048
     Dates: end: 20041018
  4. ATHYMIL [Suspect]
     Route: 048
     Dates: start: 20040913, end: 20041012
  5. SOLIAN [Suspect]
     Route: 048
     Dates: start: 20041007, end: 20041013

REACTIONS (9)
  - ALANINE AMINOTRANSFERASE INCREASED [None]
  - ASPARTATE AMINOTRANSFERASE INCREASED [None]
  - BLOOD ALKALINE PHOSPHATASE INCREASED [None]
  - BLOOD BILIRUBIN INCREASED [None]
  - CHOLANGITIS [None]
  - CHOLESTASIS [None]
  - GAMMA-GLUTAMYLTRANSFERASE INCREASED [None]
  - HEPATITIS [None]
  - JAUNDICE [None]
